FAERS Safety Report 7768780-5 (Version None)
Quarter: 2011Q3

REPORT INFORMATION
  Report Type: 
  Country: None (occurrence: None)
  Receive Date: 20110922
  Receipt Date: 20110610
  Transmission Date: 20111222
  Serious: No
  Sender: FDA-Public Use
  Company Number: US-ASTRAZENECA-2011SE35740

PATIENT
  Sex: Female

DRUGS (2)
  1. LEXAPRO [Suspect]
     Route: 065
  2. SEROQUEL [Suspect]
     Route: 048
     Dates: start: 20110518

REACTIONS (6)
  - DEPRESSION [None]
  - DECREASED APPETITE [None]
  - PANIC ATTACK [None]
  - ANXIETY [None]
  - PHOBIA [None]
  - CONDITION AGGRAVATED [None]
